FAERS Safety Report 26120041 (Version 2)
Quarter: 2025Q4

REPORT INFORMATION
  Report Type: Spontaneous
  Country: US (occurrence: US)
  Receive Date: 20251204
  Receipt Date: 20251205
  Transmission Date: 20260118
  Serious: Yes (Hospitalization, Other)
  Sender: RANBAXY
  Company Number: US-SUN PHARMACEUTICAL INDUSTRIES INC-2025R1-539362

PATIENT
  Age: 57 Year
  Sex: Female

DRUGS (2)
  1. CYCLOBENZAPRINE [Suspect]
     Active Substance: CYCLOBENZAPRINE
     Indication: Product used for unknown indication
     Dosage: 5 TABLETS
     Route: 065
  2. FENTANYL [Suspect]
     Active Substance: FENTANYL
     Indication: Drug use disorder
     Dosage: UNK
     Route: 065

REACTIONS (4)
  - Serotonin syndrome [Recovering/Resolving]
  - Fall [Recovering/Resolving]
  - Drug screen positive [Unknown]
  - Anticoagulation drug level above therapeutic [Unknown]
